FAERS Safety Report 15384811 (Version 1)
Quarter: 2018Q3

REPORT INFORMATION
  Report Type: Spontaneous
  Country: US (occurrence: US)
  Receive Date: 20180914
  Receipt Date: 20180914
  Transmission Date: 20181010
  Serious: Yes (Disabling, Other)
  Sender: FDA-Public Use
  Company Number: US-SA-2018SA247558

PATIENT
  Age: 56 Year
  Sex: Male

DRUGS (1)
  1. LANTUS [Suspect]
     Active Substance: INSULIN GLARGINE
     Indication: TYPE 2 DIABETES MELLITUS
     Dosage: 30 IU, BID
     Route: 065

REACTIONS (8)
  - Weight decreased [Unknown]
  - Swelling [Unknown]
  - Ejection fraction abnormal [Recovering/Resolving]
  - Cardiac failure [Unknown]
  - Glycosylated haemoglobin decreased [Unknown]
  - Blood glucose increased [Unknown]
  - Coronary artery occlusion [Unknown]
  - Weight increased [Unknown]
